FAERS Safety Report 6891413-7 (Version None)
Quarter: 2010Q3

REPORT INFORMATION
  Report Type: 
  Country: None (occurrence: None)
  Receive Date: 20100731
  Receipt Date: 20070710
  Transmission Date: 20110219
  Serious: No
  Sender: FDA-Public Use
  Company Number: US-PFIZER INC-2007046428

PATIENT
  Sex: Female
  Weight: 86.2 kg

DRUGS (14)
  1. NORVASC [Suspect]
     Indication: HYPERTENSION
     Route: 048
     Dates: start: 20060201
  2. CHANTIX [Suspect]
     Indication: SMOKING CESSATION THERAPY
     Dates: start: 20070528, end: 20070531
  3. ACETYLSALICYLIC ACID SRT [Concomitant]
  4. ADVAIR DISKUS 100/50 [Concomitant]
     Indication: BRONCHITIS
  5. CHOLESTEROL- AND TRIGLYCERIDE REDUCERS [Concomitant]
  6. TOPROL-XL [Concomitant]
  7. CALCIUM [Concomitant]
  8. WELLBUTRIN [Concomitant]
  9. CITALOPRAM [Concomitant]
  10. TRAMADOL HYDROCHLORIDE [Concomitant]
  11. LIPITOR [Concomitant]
  12. PROTONIX [Concomitant]
  13. ZANTAC [Concomitant]
  14. FOSAMAX PLUS D [Concomitant]

REACTIONS (2)
  - BLOOD PRESSURE INADEQUATELY CONTROLLED [None]
  - DIZZINESS [None]
